FAERS Safety Report 9915986 (Version 3)
Quarter: 2014Q1

REPORT INFORMATION
  Report Type: Spontaneous
  Country: US (occurrence: None)
  Receive Date: 20140219
  Receipt Date: 20140318
  Transmission Date: 20141002
  Serious: Yes (Hospitalization, Other)
  Sender: FDA-Public Use
  Company Number: AUR-APL-2013-09450

PATIENT
  Age: 72 Year
  Sex: Female
  Weight: 49.43 kg

DRUGS (3)
  1. PANTOPRAZOLE [Suspect]
     Indication: GASTRIC DISORDER
     Dosage: 40 MG (40 MG, 1 IN 1 D), UNKNOWN
     Dates: end: 2013
  2. PANTOPRAZOLE [Suspect]
     Indication: GASTROINTESTINAL DISORDER
     Dosage: 40 MG (40 MG, 1 IN 1 D), UNKNOWN
     Dates: end: 2013
  3. PERCOCET [Suspect]
     Indication: GASTRIC DISORDER

REACTIONS (9)
  - Gastrointestinal disorder [None]
  - Drug intolerance [None]
  - Ulcer [None]
  - Flank pain [None]
  - Drug ineffective [None]
  - Pain [None]
  - Product substitution issue [None]
  - Intestinal ulcer [None]
  - Irritable bowel syndrome [None]
